FAERS Safety Report 7600263-5 (Version None)
Quarter: 2011Q3

REPORT INFORMATION
  Report Type: 
  Country: None (occurrence: None)
  Receive Date: 20110711
  Receipt Date: 20110629
  Transmission Date: 20111222
  Serious: Yes (Hospitalization)
  Sender: FDA-Public Use
  Company Number: DE-CELGENEUS-062-AB007-11070015

PATIENT
  Age: 81 Year
  Sex: Female
  Weight: 69.5 kg

DRUGS (7)
  1. SIMVASTATIN [Concomitant]
     Dosage: 20 MILLIGRAM
     Route: 048
     Dates: start: 20060101
  2. BROMAZEPAM [Concomitant]
     Indication: AGITATION
  3. LEVOTHYROXINE SODIUM [Concomitant]
     Indication: HYPERTHYROIDISM
     Dosage: 125 MILLIGRAM
     Route: 048
     Dates: start: 20060101
  4. PRAMIPEXOLE DIHYDROCHLORIDE [Concomitant]
     Dosage: .9 MILLIGRAM
     Route: 048
     Dates: start: 20060101
  5. BROMAZEPAM [Concomitant]
     Dosage: 8 MILLIGRAM
     Route: 048
  6. ABRAXANE [Suspect]
     Indication: METASTATIC MALIGNANT MELANOMA
     Route: 051
     Dates: start: 20110503
  7. ABRAXANE [Suspect]
     Route: 051
     Dates: start: 20110614, end: 20110627

REACTIONS (1)
  - METASTASES TO CENTRAL NERVOUS SYSTEM [None]
